FAERS Safety Report 5242737-0 (Version None)
Quarter: 2007Q1

REPORT INFORMATION
  Report Type: 
  Country: None (occurrence: None)
  Receive Date: 20070221
  Receipt Date: 20070216
  Transmission Date: 20070707
  Serious: Yes (Hospitalization)
  Sender: FDA-Public Use
  Company Number: DE-GLAXOSMITHKLINE-D0052331A

PATIENT
  Age: 44 Year
  Sex: Female

DRUGS (4)
  1. ZOFRAN [Suspect]
     Indication: BREAST CANCER
     Dosage: 8MG PER DAY
     Route: 042
     Dates: start: 20060912, end: 20060912
  2. DOCETAXEL [Suspect]
     Indication: BREAST CANCER
     Route: 042
     Dates: start: 20060912, end: 20060912
  3. GEMCITABINE [Suspect]
     Indication: BREAST CANCER
     Dosage: 1754MG PER DAY
     Route: 042
     Dates: start: 20060912, end: 20060929
  4. DEXAMETHASONE [Suspect]
     Indication: BREAST CANCER
     Dosage: 8MG PER DAY
     Route: 042
     Dates: start: 20060912, end: 20060912

REACTIONS (3)
  - ANAEMIA [None]
  - LEUKOPENIA [None]
  - PYREXIA [None]
